FAERS Safety Report 20314371 (Version 2)
Quarter: 2022Q1

REPORT INFORMATION
  Report Type: Spontaneous
  Country: IE (occurrence: IE)
  Receive Date: 20220109
  Receipt Date: 20220310
  Transmission Date: 20220423
  Serious: Yes (Hospitalization, Other)
  Sender: FDA-Public Use
  Company Number: IE-NOVARTISPH-NVSC2022IE002171

PATIENT
  Age: 28 Year
  Sex: Male

DRUGS (4)
  1. MYCOPHENOLATE MOFETIL [Suspect]
     Active Substance: MYCOPHENOLATE MOFETIL
     Indication: Lupus nephritis
     Dosage: 1 G, BID (ONE GRAM TWICE DAILY)(IMMUNOSUPPRESSIVE AGENTS)
     Route: 065
  2. MYCOPHENOLATE MOFETIL [Suspect]
     Active Substance: MYCOPHENOLATE MOFETIL
     Dosage: UNK, DOSE REDUCED
     Route: 065
  3. ISAVUCONAZONIUM SULFATE [Suspect]
     Active Substance: ISAVUCONAZONIUM SULFATE
     Indication: Cutaneous mucormycosis
     Dosage: 200 MG, Q8H (200 MG IV EVERY EIGHT HOURS FOR TWO DAYS, THEN 200 MG ONCE DAILY ORALLY)
     Route: 042
  4. ISAVUCONAZONIUM SULFATE [Suspect]
     Active Substance: ISAVUCONAZONIUM SULFATE
     Dosage: 200 MG, QD (200 MG IV EVERY EIGHT HOURS FOR TWO DAYS, THEN 200 MG ONCE DAILY ORALLY)
     Route: 048

REACTIONS (7)
  - Anaemia [Recovering/Resolving]
  - Pancytopenia [Unknown]
  - Chronic kidney disease [Unknown]
  - Opportunistic infection [Unknown]
  - Hypogammaglobulinaemia [Unknown]
  - Cutaneous mucormycosis [Unknown]
  - Off label use [Unknown]
